FAERS Safety Report 13325281 (Version 3)
Quarter: 2017Q1

REPORT INFORMATION
  Report Type: Spontaneous
  Country: CH (occurrence: CH)
  Receive Date: 20170310
  Receipt Date: 20170317
  Transmission Date: 20170428
  Serious: Yes (Hospitalization)
  Sender: FDA-Public Use
  Company Number: CH-PFIZER INC-2017093704

PATIENT
  Age: 28 Year
  Sex: Male
  Weight: 54 kg

DRUGS (14)
  1. VANCOMYCIN [Interacting]
     Active Substance: VANCOMYCIN
     Dosage: 1750 MG, DAILY (1250 - 500 MG)
     Route: 040
     Dates: start: 20170209, end: 20170209
  2. BUDESONIDE. [Interacting]
     Active Substance: BUDESONIDE
     Indication: CROHN^S DISEASE
     Dosage: 3 MG, 3X/DAY
     Route: 048
     Dates: end: 20170117
  3. ACCUPAQUE [Interacting]
     Active Substance: IOHEXOL
     Indication: ABDOMEN SCAN
     Dosage: 104 ML, SINGLE
     Route: 040
     Dates: start: 20170122, end: 20170122
  4. TAZOBAC [Suspect]
     Active Substance: PIPERACILLIN SODIUM\TAZOBACTAM SODIUM
     Indication: ABDOMINAL INFECTION
     Dosage: 4.5 G, 3X/DAY
     Route: 040
     Dates: start: 20170122, end: 20170209
  5. VANCOMYCIN [Interacting]
     Active Substance: VANCOMYCIN
     Dosage: 1000 MG, 3X/DAY (1000 - 1000 - 1000 MG)
     Route: 040
     Dates: start: 20170206, end: 20170206
  6. ACCUPAQUE [Interacting]
     Active Substance: IOHEXOL
     Dosage: 104 ML, SINGLE
     Route: 040
     Dates: start: 20170129
  7. VANCOMYCIN [Interacting]
     Active Substance: VANCOMYCIN
     Indication: ABDOMINAL INFECTION
     Dosage: 750 MG, DAILY
     Route: 040
     Dates: start: 20170203, end: 20170203
  8. VANCOMYCIN [Interacting]
     Active Substance: VANCOMYCIN
     Dosage: 750 -750 MG
     Route: 040
     Dates: start: 20170204, end: 20170204
  9. DIFLUCAN [Concomitant]
     Active Substance: FLUCONAZOLE
     Indication: PERITONEAL CANDIDIASIS
     Dosage: 400 MG, 1X/DAY
     Route: 040
     Dates: start: 20170130
  10. VANCOMYCIN [Interacting]
     Active Substance: VANCOMYCIN
     Dosage: 750-1000 MG
     Route: 040
     Dates: start: 20170205, end: 20170205
  11. VANCOMYCIN [Interacting]
     Active Substance: VANCOMYCIN
     Dosage: 3250 MG, DAILY (1000 - 1000 - 1250 MG)
     Route: 040
     Dates: start: 20170207, end: 20170207
  12. VANCOMYCIN [Interacting]
     Active Substance: VANCOMYCIN
     Dosage: 1250 MG, 3X/DAY (1250 - 1250 - 1250 MG)
     Route: 040
     Dates: start: 20170208, end: 20170208
  13. ACCUPAQUE [Interacting]
     Active Substance: IOHEXOL
     Dosage: 100 ML, SINGLE
     Route: 040
     Dates: start: 20170206, end: 20170206
  14. ENTYVIO [Interacting]
     Active Substance: VEDOLIZUMAB
     Indication: CROHN^S DISEASE
     Dosage: 300 MG, EVERY EIGHT WEEKS
     Route: 040
     Dates: start: 2015

REACTIONS (8)
  - Gastrointestinal anastomotic leak [Recovered/Resolved]
  - Gastrointestinal anastomotic leak [Recovered/Resolved]
  - Drug interaction [Unknown]
  - Post procedural infection [Recovered/Resolved]
  - Abdominal abscess [Recovered/Resolved]
  - Drug prescribing error [Recovered/Resolved]
  - Acute kidney injury [Recovering/Resolving]
  - Abdominal wall abscess [Recovered/Resolved]

NARRATIVE: CASE EVENT DATE: 20170122
